FAERS Safety Report 14074972 (Version 1)
Quarter: 2017Q4

REPORT INFORMATION
  Report Type: Spontaneous
  Country: US (occurrence: US)
  Receive Date: 20171010
  Receipt Date: 20171010
  Transmission Date: 20180321
  Serious: Yes (Hospitalization, Other)
  Sender: FDA-Public Use
  Company Number: US-ELI_LILLY_AND_COMPANY-US201710001011

PATIENT
  Sex: Male

DRUGS (2)
  1. HUMULIN R [Suspect]
     Active Substance: INSULIN HUMAN
     Indication: PANCREATECTOMY
     Dosage: SLIDING SCALE, BEFORE MEALS
     Route: 058
  2. HUMULIN R [Suspect]
     Active Substance: INSULIN HUMAN
     Indication: PANCREATECTOMY
     Dosage: SLIDING SCALE, BEFORE MEALS
     Route: 058
     Dates: end: 201704

REACTIONS (12)
  - Infection [Recovered/Resolved]
  - Blood glucose decreased [Not Recovered/Not Resolved]
  - Stress [Unknown]
  - Loss of consciousness [Recovered/Resolved]
  - Blood glucose increased [Not Recovered/Not Resolved]
  - Drug administration error [Recovered/Resolved]
  - Erythema [Recovered/Resolved]
  - Cardiac failure congestive [Unknown]
  - Limb injury [Recovered/Resolved]
  - Fall [Recovered/Resolved]
  - Dehydration [Unknown]
  - Fluid intake reduced [Unknown]

NARRATIVE: CASE EVENT DATE: 2016
